FAERS Safety Report 8501905-2 (Version None)
Quarter: 2012Q3

REPORT INFORMATION
  Report Type: 
  Country: None (occurrence: None)
  Receive Date: 20120711
  Receipt Date: 20120629
  Transmission Date: 20120928
  Serious: Yes (Hospitalization, Other)
  Sender: FDA-Public Use
  Company Number: JP-VERTEX PHARMACEUTICALS INC.-AE-2012-006745

PATIENT
  Age: 65 Year
  Sex: Male

DRUGS (9)
  1. PEG-INTRON [Concomitant]
     Indication: HEPATITIS C
     Route: 058
     Dates: start: 20120313, end: 20120404
  2. LASIX [Concomitant]
     Route: 048
     Dates: end: 20120501
  3. BACTRIM [Concomitant]
     Route: 048
  4. ALDACTONE [Concomitant]
     Route: 048
     Dates: end: 20120501
  5. NEO-MINOPHAGEN C [Concomitant]
     Dates: start: 20120623
  6. REBETOL [Concomitant]
     Indication: HEPATITIS C
     Route: 048
     Dates: start: 20120313, end: 20120404
  7. INCIVEK [Suspect]
     Indication: HEPATITIS C
     Route: 048
     Dates: start: 20120313, end: 20120404
  8. CELESTAMINE TAB [Concomitant]
     Route: 048
     Dates: end: 20120425
  9. URSO 250 [Concomitant]
     Route: 048
     Dates: start: 20120629

REACTIONS (5)
  - INTERSTITIAL LUNG DISEASE [None]
  - PLATELET COUNT DECREASED [None]
  - HEPATIC FAILURE [None]
  - PSEUDOMEMBRANOUS COLITIS [None]
  - PANCREATITIS ACUTE [None]
